FAERS Safety Report 20155537 (Version 2)
Quarter: 2021Q4

REPORT INFORMATION
  Report Type: Spontaneous
  Country: GB (occurrence: GB)
  Receive Date: 20211207
  Receipt Date: 20211216
  Transmission Date: 20220303
  Serious: Yes (Life-Threatening, Hospitalization)
  Sender: FDA-Public Use
  Company Number: GB-SAMSUNG BIOEPIS-SB-2021-27906

PATIENT
  Age: 34 Year
  Sex: Male

DRUGS (3)
  1. IMRALDI [Suspect]
     Active Substance: ADALIMUMAB
     Indication: Crohn^s disease
     Dosage: UNKNOWN
     Route: 058
  2. AZATHIOPRINE [Concomitant]
     Active Substance: AZATHIOPRINE
     Indication: Crohn^s disease
     Dosage: UNKNOWN
     Route: 065
  3. MESALAMINE [Concomitant]
     Active Substance: MESALAMINE
     Indication: Crohn^s disease
     Dosage: UNKNOWN
     Route: 065

REACTIONS (15)
  - Suicide attempt [Recovering/Resolving]
  - Intentional self-injury [Recovering/Resolving]
  - Acute stress disorder [Recovering/Resolving]
  - Sensory loss [Recovering/Resolving]
  - Neuropsychiatric symptoms [Recovering/Resolving]
  - Crohn^s disease [Unknown]
  - Lethargy [Unknown]
  - Malaise [Unknown]
  - Rash maculo-papular [Unknown]
  - Photosensitivity reaction [Unknown]
  - Taste disorder [Unknown]
  - Vitreous floaters [Unknown]
  - Skin abrasion [Unknown]
  - Affect lability [Unknown]
  - Product substitution issue [Unknown]
